FAERS Safety Report 7746211-9 (Version None)
Quarter: 2011Q3

REPORT INFORMATION
  Report Type: 
  Country: None (occurrence: None)
  Receive Date: 20110913
  Receipt Date: 20110907
  Transmission Date: 20111222
  Serious: Yes (Other)
  Sender: FDA-Public Use
  Company Number: US-ROCHE-790895

PATIENT
  Sex: Female
  Weight: 68 kg

DRUGS (7)
  1. OXYBUTYNIN [Concomitant]
  2. BONIVA [Suspect]
     Indication: OSTEOPENIA
     Dosage: DOSE REPORTED AS 150 ( UNITS UNKNOWN)
     Route: 048
     Dates: end: 20110601
  3. BACLOFEN [Concomitant]
  4. LEXAPRO [Concomitant]
  5. OMEPRAZOLE [Concomitant]
  6. IBUPROFEN [Concomitant]
  7. BENICAR [Concomitant]

REACTIONS (2)
  - GINGIVAL DISORDER [None]
  - OSTEONECROSIS [None]
